FAERS Safety Report 25459868 (Version 1)
Quarter: 2025Q2

REPORT INFORMATION
  Report Type: Spontaneous
  Country: DE (occurrence: DE)
  Receive Date: 20250620
  Receipt Date: 20250620
  Transmission Date: 20250716
  Serious: Yes (Other)
  Sender: AUROBINDO
  Company Number: DE-ELI_LILLY_AND_COMPANY-DE202505023265

PATIENT
  Sex: Male

DRUGS (3)
  1. TADALAFIL [Interacting]
     Active Substance: TADALAFIL
     Indication: Blood pressure management
     Dosage: 30 MILLIGRAM, ONCE A DAY
     Route: 065
  2. TADALAFIL [Interacting]
     Active Substance: TADALAFIL
     Indication: Blood pressure management
     Dosage: 30 MILLIGRAM, ONCE A DAY
     Route: 065
  3. RAMIPRIL [Interacting]
     Active Substance: RAMIPRIL
     Indication: Product used for unknown indication
     Route: 065

REACTIONS (5)
  - Atrial fibrillation [Unknown]
  - Loss of libido [Unknown]
  - General physical health deterioration [Unknown]
  - Drug interaction [Unknown]
  - Off label use [Unknown]
